FAERS Safety Report 20142643 (Version 1)
Quarter: 2021Q4

REPORT INFORMATION
  Report Type: Spontaneous
  Country: US (occurrence: US)
  Receive Date: 20211202
  Receipt Date: 20211202
  Transmission Date: 20220303
  Serious: No
  Sender: FDA-Public Use
  Company Number: US-AMGEN-USASP2021189282

PATIENT
  Age: 67 Year
  Sex: Female

DRUGS (3)
  1. MVASI [Suspect]
     Active Substance: BEVACIZUMAB-AWWB
     Indication: Ovarian cancer
     Dosage: 1060 MILLIGRAM
     Route: 065
     Dates: start: 20210806
  2. CARBOPLATIN [Suspect]
     Active Substance: CARBOPLATIN
     Indication: Product used for unknown indication
     Dosage: 188 MILLIGRAM
     Route: 065
     Dates: start: 20211124
  3. PACLITAXEL [Concomitant]
     Active Substance: PACLITAXEL
     Dosage: 307 MILLIGRAM
     Route: 065
     Dates: start: 20211124

REACTIONS (1)
  - Infusion related reaction [Unknown]

NARRATIVE: CASE EVENT DATE: 20211124
